FAERS Safety Report 5613654-9 (Version None)
Quarter: 2008Q1

REPORT INFORMATION
  Report Type: 
  Country: None (occurrence: None)
  Receive Date: 20080205
  Receipt Date: 20080129
  Transmission Date: 20080703
  Serious: Yes (Other)
  Sender: FDA-Public Use
  Company Number: CA-JNJFOC-20080107290

PATIENT
  Sex: Female
  Weight: 52.2 kg

DRUGS (8)
  1. REMICADE [Suspect]
     Dosage: 57TH INFUSION; INTERVAL: EVERY 4-6 WEEKS
     Route: 042
  2. REMICADE [Suspect]
     Indication: RHEUMATOID ARTHRITIS
     Route: 042
  3. CELEBREX [Concomitant]
  4. ACTONEL [Concomitant]
  5. CALCIUM GLUCONATE [Concomitant]
  6. METHOTREXATE [Concomitant]
     Route: 050
  7. FOLIC ACID [Concomitant]
  8. VITAMIN D [Concomitant]

REACTIONS (1)
  - ACTINIC KERATOSIS [None]
